FAERS Safety Report 15621325 (Version 2)
Quarter: 2018Q4

REPORT INFORMATION
  Report Type: Spontaneous
  Country: GB (occurrence: GB)
  Receive Date: 20181115
  Receipt Date: 20181120
  Transmission Date: 20190205
  Serious: Yes (Hospitalization)
  Sender: FDA-Public Use
  Company Number: GB-PERRIGOEU-18GB012918

PATIENT

DRUGS (1)
  1. PARACETAMOL [Suspect]
     Active Substance: ACETAMINOPHEN
     Indication: INTENTIONAL OVERDOSE
     Dosage: 10000 MG, UNK
     Route: 048
     Dates: start: 20181031, end: 20181031

REACTIONS (5)
  - Intentional overdose [Unknown]
  - Liver injury [Unknown]
  - Vomiting [Unknown]
  - Gastrointestinal disorder [Unknown]
  - Hypotension [Unknown]

NARRATIVE: CASE EVENT DATE: 20181031
